APPROVED DRUG PRODUCT: PRAMIPEXOLE DIHYDROCHLORIDE
Active Ingredient: PRAMIPEXOLE DIHYDROCHLORIDE
Strength: 0.375MG
Dosage Form/Route: TABLET, EXTENDED RELEASE;ORAL
Application: A204518 | Product #001 | TE Code: AB
Applicant: ALEMBIC PHARMACEUTICALS LTD
Approved: Jan 2, 2019 | RLD: No | RS: No | Type: RX